FAERS Safety Report 4694700-6 (Version None)
Quarter: 2005Q2

REPORT INFORMATION
  Report Type: 
  Country: None (occurrence: None)
  Receive Date: 20050617
  Receipt Date: 20050609
  Transmission Date: 20051028
  Serious: Yes (Death, Hospitalization, Other)
  Sender: FDA-Public Use
  Company Number: 2014517

PATIENT
  Age: 53 Year
  Sex: Female
  Weight: 63.5 kg

DRUGS (54)
  1. OXYCONTIN [Suspect]
     Indication: PAIN
     Dosage: SEE IMAGE
     Route: 048
     Dates: start: 19980101, end: 20010506
  2. OXYCONTIN [Suspect]
     Indication: PAIN
     Dosage: SEE IMAGE
     Route: 048
     Dates: start: 19970701
  3. OXYCONTIN [Suspect]
     Indication: PAIN
     Dosage: SEE IMAGE
     Route: 048
     Dates: start: 19970910
  4. OXYCONTIN [Suspect]
     Indication: PAIN
     Dosage: SEE IMAGE
     Route: 048
     Dates: start: 19980806
  5. OXYCONTIN [Suspect]
     Indication: PAIN
     Dosage: SEE IMAGE
     Route: 048
     Dates: start: 19981208
  6. OXYCONTIN [Suspect]
     Indication: PAIN
     Dosage: SEE IMAGE
     Route: 048
     Dates: start: 19990202
  7. OXYCONTIN [Suspect]
     Indication: PAIN
     Dosage: SEE IMAGE
     Route: 048
     Dates: start: 20000313
  8. LIPITOR [Concomitant]
  9. ELAVIL [Concomitant]
  10. DESYREL [Concomitant]
  11. VERAPAMIL [Concomitant]
  12. ZITHROMAX [Concomitant]
  13. CELESTONE [Concomitant]
  14. TORADOL [Concomitant]
  15. PHENERGAN EXPECTORANT [Concomitant]
  16. PREVACID [Concomitant]
  17. VERELAN (VERAPAMIL HYDROCHLORIDE) [Concomitant]
  18. ESTRATEST [Concomitant]
  19. XANAX [Concomitant]
  20. AMBIEN [Concomitant]
  21. EFFEXOR XR [Concomitant]
  22. CLONIDINE [Concomitant]
  23. SOMA [Concomitant]
  24. HALOTESTIN (FLUOXYMESTERONE) [Concomitant]
  25. CELEXA [Concomitant]
  26. PREDNISONE [Concomitant]
  27. DEXEDRINE [Concomitant]
  28. PROPOXYPHENE HCL [Concomitant]
  29. LANOXIN [Concomitant]
  30. GLUCOPHAGE [Concomitant]
  31. REGLAN [Concomitant]
  32. NEURONTIN [Concomitant]
  33. ARAVA [Concomitant]
  34. FLAGYL [Concomitant]
  35. BIAXIN [Concomitant]
  36. ISOPTIN [Concomitant]
  37. TICLID [Concomitant]
  38. WELLBUTRIN [Concomitant]
  39. PRANDIN ^KUHN^ (DEFLAZACORT) [Concomitant]
  40. HYDRONET (HYDROCHLOROTHIAZIDE, AMILORIDE) [Concomitant]
  41. CALCIUM GLUCONATE [Concomitant]
  42. DHEA (PRASTERONE) [Concomitant]
  43. DEPO-ESTRADIOL [Concomitant]
  44. ROXICODONE [Concomitant]
  45. PLETAL [Concomitant]
  46. LASIX [Concomitant]
  47. POTASSIUM CHLORIDE [Concomitant]
  48. ATIVAN [Concomitant]
  49. ALBUTEROL [Concomitant]
  50. PEPCID [Concomitant]
  51. CELEBREX [Concomitant]
  52. INSULIN, REGULAR (INSULIN) [Concomitant]
  53. SIMETHICONE (SIMETICONE) [Concomitant]
  54. OXYCODONE HCL [Concomitant]

REACTIONS (56)
  - ABASIA [None]
  - ACCIDENTAL OVERDOSE [None]
  - ANDROGENS DECREASED [None]
  - ANGIOPLASTY [None]
  - ANKLE FRACTURE [None]
  - ANXIETY [None]
  - AORTIC BYPASS [None]
  - ASTHENIA [None]
  - ATTENTION DEFICIT/HYPERACTIVITY DISORDER [None]
  - BALANCE DISORDER [None]
  - BLOOD OESTROGEN DECREASED [None]
  - BRUXISM [None]
  - BURSITIS [None]
  - CONDITION AGGRAVATED [None]
  - CONFUSIONAL STATE [None]
  - CONSTIPATION [None]
  - CORNEAL EROSION [None]
  - CYANOSIS [None]
  - DEPRESSION [None]
  - DIABETES MELLITUS [None]
  - DIARRHOEA [None]
  - DISCOMFORT [None]
  - DIZZINESS [None]
  - DRUG ABUSER [None]
  - DRUG DEPENDENCE [None]
  - DRUG INEFFECTIVE [None]
  - DRUG WITHDRAWAL SYNDROME [None]
  - DYSSTASIA [None]
  - EYE IRRITATION [None]
  - FALL [None]
  - FATIGUE [None]
  - HEART RATE DECREASED [None]
  - ILEUS [None]
  - MEDICATION ERROR [None]
  - MYOCLONUS [None]
  - NAUSEA [None]
  - NEUROPATHY PERIPHERAL [None]
  - NIPPLE PAIN [None]
  - OVERDOSE [None]
  - PAIN [None]
  - PAIN IN EXTREMITY [None]
  - PALLOR [None]
  - PERIPHERAL VASCULAR DISORDER [None]
  - PHARYNGOLARYNGEAL PAIN [None]
  - PNEUMONIA BACTERIAL [None]
  - RHEUMATOID ARTHRITIS [None]
  - ROAD TRAFFIC ACCIDENT [None]
  - SLEEP DISORDER [None]
  - SOMNOLENCE [None]
  - SUICIDE ATTEMPT [None]
  - TACHYCARDIA [None]
  - TIBIA FRACTURE [None]
  - UPPER RESPIRATORY TRACT INFECTION [None]
  - VISION BLURRED [None]
  - VOMITING [None]
  - WEIGHT INCREASED [None]
